FAERS Safety Report 9450823 (Version 7)
Quarter: 2014Q2

REPORT INFORMATION
  Report Type: Report from Study
  Country: JP (occurrence: JP)
  Receive Date: 20130809
  Receipt Date: 20140528
  Transmission Date: 20141212
  Serious: Yes (Death, Life-Threatening, Hospitalization)
  Sender: FDA-Public Use
  Company Number: JP-PFIZER INC-2013232271

PATIENT
  Age: 51 Year
  Sex: Male
  Weight: 47.3 kg

DRUGS (3)
  1. XALKORI [Suspect]
     Indication: NON-SMALL CELL LUNG CANCER
     Dosage: 250 MG, 2X/DAY
     Route: 048
     Dates: start: 20130703, end: 20130721
  2. NAUZELIN [Concomitant]
     Dosage: 10 MG, AS NEEDED
     Route: 048
     Dates: start: 20130630, end: 20130714
  3. TAKEPRON OD [Concomitant]
     Dosage: 15 MG, 1X/DAY
     Route: 048
     Dates: start: 20130618, end: 20130731

REACTIONS (4)
  - Arrhythmia [Fatal]
  - Electrocardiogram QT prolonged [Recovering/Resolving]
  - Oesophagitis [Not Recovered/Not Resolved]
  - Malaise [Recovering/Resolving]
